FAERS Safety Report 22053475 (Version 1)
Quarter: 2023Q1

REPORT INFORMATION
  Report Type: Spontaneous
  Country: CN (occurrence: CN)
  Receive Date: 20230302
  Receipt Date: 20230302
  Transmission Date: 20230417
  Serious: Yes (Hospitalization)
  Sender: FDA-Public Use
  Company Number: CN-SA-SAC20230228001591

PATIENT
  Age: 57 Year
  Sex: Male

DRUGS (3)
  1. ENOXAPARIN SODIUM [Suspect]
     Active Substance: ENOXAPARIN SODIUM
     Indication: Coronary angioplasty
     Dosage: 0.4ML 1X
     Route: 058
     Dates: start: 20230216, end: 20230216
  2. HEPARIN SODIUM [Suspect]
     Active Substance: HEPARIN SODIUM
     Indication: Coronary angioplasty
     Dosage: 1X 25000IU
     Dates: start: 20230216, end: 20230216
  3. TIROFIBAN HYDROCHLORIDE [Suspect]
     Active Substance: TIROFIBAN HYDROCHLORIDE
     Indication: Coronary angioplasty
     Dosage: 100ML 1X
     Route: 041
     Dates: start: 20230216, end: 20230216

REACTIONS (1)
  - Coagulation time prolonged [Recovering/Resolving]

NARRATIVE: CASE EVENT DATE: 20230216
